FAERS Safety Report 7180427-8 (Version None)
Quarter: 2010Q4

REPORT INFORMATION
  Report Type: 
  Country: None (occurrence: None)
  Receive Date: 20101221
  Receipt Date: 20101214
  Transmission Date: 20110411
  Serious: Yes (Hospitalization)
  Sender: FDA-Public Use
  Company Number: B0690030A

PATIENT
  Sex: Male

DRUGS (1)
  1. AUGMENTIN '125' [Suspect]
     Indication: BACTERIAL INFECTION
     Dosage: 1.2G SEE DOSAGE TEXT
     Route: 042

REACTIONS (2)
  - RASH [None]
  - STEVENS-JOHNSON SYNDROME [None]
